FAERS Safety Report 4792624-7 (Version None)
Quarter: 2005Q4

REPORT INFORMATION
  Report Type: 
  Country: None (occurrence: None)
  Receive Date: 20051010
  Receipt Date: 20050928
  Transmission Date: 20060501
  Serious: Yes (Hospitalization)
  Sender: FDA-Public Use
  Company Number: US-SANOFI-SYNTHELABO-A03200503092

PATIENT
  Sex: Male
  Weight: 114.74 kg

DRUGS (5)
  1. PLAVIX [Suspect]
     Route: 048
     Dates: start: 20041227, end: 20050711
  2. HUMULIN 70/30 [Concomitant]
     Dosage: 44 UNITS QAM AND 30 UNITS QPM
     Route: 058
     Dates: start: 19990301
  3. PRINIVIL [Concomitant]
     Route: 048
     Dates: start: 19990301
  4. LOPRESSOR [Concomitant]
     Dosage: 100 MG QAM AND 50MG QPM
     Route: 048
     Dates: start: 19990301
  5. ZOCOR [Concomitant]
     Route: 048
     Dates: start: 20050101

REACTIONS (3)
  - JOINT SWELLING [None]
  - PULMONARY THROMBOSIS [None]
  - THROMBOSIS [None]
